FAERS Safety Report 8319515-9 (Version None)
Quarter: 2012Q2

REPORT INFORMATION
  Report Type: 
  Country: None (occurrence: None)
  Receive Date: 20120427
  Receipt Date: 20120412
  Transmission Date: 20120825
  Serious: Yes (Other)
  Sender: FDA-Public Use
  Company Number: US-UCBSA-055845

PATIENT
  Age: 15 Year
  Sex: Male

DRUGS (3)
  1. OMEPRAZOLE [Suspect]
  2. RANITIDINE [Concomitant]
  3. METHOTREXATE [Concomitant]
     Dosage: 5 G/M?

REACTIONS (2)
  - MUCOSAL INFLAMMATION [None]
  - DRUG CLEARANCE DECREASED [None]
